FAERS Safety Report 13150732 (Version 3)
Quarter: 2017Q2

REPORT INFORMATION
  Report Type: Spontaneous
  Country: US (occurrence: US)
  Receive Date: 20170125
  Receipt Date: 20170518
  Transmission Date: 20170830
  Serious: Yes (Hospitalization, Other)
  Sender: FDA-Public Use
  Company Number: US-GLAXOSMITHKLINE-US2017009408

PATIENT
  Age: 63 Year
  Sex: Female
  Weight: 61.22 kg

DRUGS (7)
  1. VENTOLIN HFA [Suspect]
     Active Substance: ALBUTEROL SULFATE
     Indication: ASTHMA
  2. XANAX [Concomitant]
     Active Substance: ALPRAZOLAM
  3. VENTOLIN HFA [Suspect]
     Active Substance: ALBUTEROL SULFATE
     Indication: CHRONIC OBSTRUCTIVE PULMONARY DISEASE
     Dosage: 2 PUFF(S), UNK
     Route: 055
     Dates: start: 2013
  4. MORPHINE SULFATE. [Concomitant]
     Active Substance: MORPHINE SULFATE
  5. QVAR [Concomitant]
     Active Substance: BECLOMETHASONE DIPROPIONATE
  6. CITALOPRAM [Concomitant]
     Active Substance: CITALOPRAM HYDROBROMIDE
  7. CYCLOBENZAPRINE. [Concomitant]
     Active Substance: CYCLOBENZAPRINE

REACTIONS (18)
  - Tachypnoea [Unknown]
  - Pain [Unknown]
  - Dyspnoea [Unknown]
  - Mitral valve incompetence [Unknown]
  - Cardiomegaly [Unknown]
  - Pneumonia [Recovering/Resolving]
  - Tachycardia [Unknown]
  - Liver function test abnormal [Unknown]
  - Anxiety [Unknown]
  - Acute respiratory failure [Unknown]
  - Dry mouth [Unknown]
  - Mental status changes [Unknown]
  - Tricuspid valve incompetence [Unknown]
  - Wheezing [Unknown]
  - Sepsis [Unknown]
  - Asthenia [Recovering/Resolving]
  - Chronic obstructive pulmonary disease [Unknown]
  - Essential hypertension [Unknown]

NARRATIVE: CASE EVENT DATE: 20161226
